FAERS Safety Report 9738291 (Version 1)
Quarter: 2013Q4

REPORT INFORMATION
  Report Type: Spontaneous
  Country: US (occurrence: US)
  Receive Date: 20131208
  Receipt Date: 20131208
  Transmission Date: 20140711
  Serious: No
  Sender: FDA-Public Use
  Company Number: US-SANOFI-AVENTIS-2013SA015908

PATIENT
  Age: 81 Year
  Sex: Male

DRUGS (1)
  1. FERRLECIT [Suspect]
     Route: 051

REACTIONS (2)
  - Extravasation [Recovered/Resolved]
  - Infusion site extravasation [Recovered/Resolved]
